FAERS Safety Report 18295385 (Version 3)
Quarter: 2020Q4

REPORT INFORMATION
  Report Type: Spontaneous
  Country: JP (occurrence: JP)
  Receive Date: 20200922
  Receipt Date: 20201229
  Transmission Date: 20210113
  Serious: Yes (Hospitalization, Other)
  Sender: FDA-Public Use
  Company Number: JP-009507513-2009JPN001445J

PATIENT
  Age: 63 Year
  Sex: Male
  Weight: 44 kg

DRUGS (20)
  1. FLUOROURACIL. [Suspect]
     Active Substance: FLUOROURACIL
     Indication: HYPOPHARYNGEAL CANCER
     Dosage: 1120 MILLIGRAM, 1 COURSE FOR 21 DAYS, 4 DAYS PER COURSE
     Route: 041
     Dates: start: 20200403, end: 20200703
  2. REBAMIPIDE [Concomitant]
     Active Substance: REBAMIPIDE
     Dosage: 100 MILLIGRAM, QD, AFTER BREAKFAST
     Route: 048
     Dates: start: 20200102
  3. SODIUM FERROUS CITRATE [Concomitant]
     Active Substance: SODIUM FERROUS CITRATE
     Dosage: 50 MILLIGRAM, BID, AFTER BREAKFAST AND DINNER
     Route: 048
     Dates: start: 20200219
  4. KEYTRUDA [Suspect]
     Active Substance: PEMBROLIZUMAB
     Indication: METASTASES TO LYMPH NODES
  5. CARBOPLATIN. [Suspect]
     Active Substance: CARBOPLATIN
     Indication: HYPOPHARYNGEAL CANCER
     Dosage: 460 MILLIGRAM, Q3W
     Route: 041
     Dates: start: 20200403, end: 20200630
  6. CARBOPLATIN. [Suspect]
     Active Substance: CARBOPLATIN
     Indication: METASTASES TO LYMPH NODES
  7. MOSAPRIDE CITRATE [Concomitant]
     Active Substance: MOSAPRIDE CITRATE
     Dosage: 5 MILLIGRAM, TID, BEFORE EACH MEAL
     Route: 048
     Dates: start: 20200220
  8. MUCOSAL [Concomitant]
     Dosage: 15 MILLIGRAM, TID, AFTER EACH MEAL
     Route: 048
     Dates: start: 20200219
  9. OPSO [Concomitant]
     Active Substance: MORPHINE HYDROCHLORIDE
     Dosage: 20 MILLIGRAM, PAIN TIME
     Route: 048
     Dates: start: 20200118, end: 20200727
  10. OPSO [Concomitant]
     Active Substance: MORPHINE HYDROCHLORIDE
     Dosage: 30 MILLIGRAM, PAIN TIME
     Route: 048
     Dates: start: 20200728
  11. ZYPREXA [Concomitant]
     Active Substance: OLANZAPINE
     Dosage: 5 MILLIGRAM, QD, BEFORE BEDTIME
     Route: 048
     Dates: start: 20200323
  12. RACOL-NF [Concomitant]
     Dosage: 600G IN THE MORNING, 300G / TIME IN THE AFTERNOON, 600G / TIME IN THE EVENING, AFTER EACH MEAL
     Route: 048
     Dates: start: 20200220
  13. FENTOS [Concomitant]
     Active Substance: FENTANYL
     Dosage: 6 MILLIGRAM, QD
     Route: 051
     Dates: start: 20200323
  14. OPSO [Concomitant]
     Active Substance: MORPHINE HYDROCHLORIDE
     Dosage: 5 MILLIGRAM, PAIN TIME
     Route: 048
     Dates: start: 20200323, end: 20200727
  15. NEXIUM [Concomitant]
     Active Substance: ESOMEPRAZOLE MAGNESIUM
     Dosage: 20 MILLIGRAM, QD, AFTER BREAKFAST
     Route: 048
     Dates: start: 20191226
  16. HEAVY MAGNESIUM OXIDE [Concomitant]
     Active Substance: MAGNESIUM OXIDE
     Dosage: 0.66 GRAM, TID, AFTER EVERY MEAL
     Route: 065
     Dates: start: 20200104
  17. KEYTRUDA [Suspect]
     Active Substance: PEMBROLIZUMAB
     Indication: HYPOPHARYNGEAL CANCER
     Dosage: 200 MILLIGRAM, Q3W
     Route: 041
     Dates: start: 20200403, end: 20200630
  18. FLUOROURACIL. [Suspect]
     Active Substance: FLUOROURACIL
     Indication: METASTASES TO LYMPH NODES
  19. THYRADIN S [Concomitant]
     Active Substance: LEVOTHYROXINE SODIUM
     Dosage: 50 MICROGRAM, QD, AFTER BREAKFAST
     Route: 048
     Dates: start: 20200702
  20. FENTOS [Concomitant]
     Active Substance: FENTANYL
     Dosage: 2 MILLIGRAM, QD
     Route: 051
     Dates: start: 20200716

REACTIONS (5)
  - Immune-mediated cytopenia [Recovering/Resolving]
  - White blood cell count decreased [Recovering/Resolving]
  - Granulocyte count decreased [Recovering/Resolving]
  - Pyrexia [Recovered/Resolved]
  - Neutrophil count decreased [Recovering/Resolving]

NARRATIVE: CASE EVENT DATE: 202007
